FAERS Safety Report 25734822 (Version 1)
Quarter: 2025Q3

REPORT INFORMATION
  Report Type: Report from Study
  Country: US (occurrence: US)
  Receive Date: 20250828
  Receipt Date: 20250828
  Transmission Date: 20251021
  Serious: Yes (Hospitalization)
  Sender: EISAI
  Company Number: US-Eisai-EC-2025-193589

PATIENT
  Age: 72 Year
  Sex: Female
  Weight: 83.4 kg

DRUGS (16)
  1. LENVIMA [Suspect]
     Active Substance: LENVATINIB
     Indication: Renal cell carcinoma
     Route: 048
     Dates: start: 20250710
  2. CLONIDINE [Suspect]
     Active Substance: CLONIDINE
     Indication: Hypertension
     Route: 048
  3. KEYTRUDA [Suspect]
     Active Substance: PEMBROLIZUMAB
     Indication: Product used for unknown indication
  4. AMLODIPINE [Concomitant]
     Active Substance: AMLODIPINE BESYLATE
  5. AZELASTINE [Concomitant]
     Active Substance: AZELASTINE
  6. CLOPIDOGREL [Concomitant]
     Active Substance: CLOPIDOGREL BISULFATE
  7. FLUTICASONE [Concomitant]
     Active Substance: FLUTICASONE
  8. INSULIN NOS [Concomitant]
     Active Substance: INSULIN NOS
  9. IRBESARTAN [Concomitant]
     Active Substance: IRBESARTAN
  10. ISOSORBIDE [Concomitant]
     Active Substance: ISOSORBIDE
  11. MAGNESIUM [Concomitant]
     Active Substance: MAGNESIUM
  12. MIRALAX [Concomitant]
     Active Substance: POLYETHYLENE GLYCOL 3350
  13. NITROGLYCERIN [Concomitant]
     Active Substance: NITROGLYCERIN
  14. ONDANSETRON [Concomitant]
     Active Substance: ONDANSETRON
  15. TYLENOL [Concomitant]
     Active Substance: ACETAMINOPHEN
  16. VITAMIN D3 [Concomitant]
     Active Substance: CHOLECALCIFEROL

REACTIONS (18)
  - Blood pressure increased [Recovering/Resolving]
  - Renal disorder [Recovering/Resolving]
  - Blood glucose decreased [Not Recovered/Not Resolved]
  - Blood pressure fluctuation [Not Recovered/Not Resolved]
  - Decreased appetite [Not Recovered/Not Resolved]
  - Back pain [Not Recovered/Not Resolved]
  - Abdominal pain [Not Recovered/Not Resolved]
  - Fatigue [Not Recovered/Not Resolved]
  - Dry mouth [Not Recovered/Not Resolved]
  - Thirst [Not Recovered/Not Resolved]
  - Rash [Not Recovered/Not Resolved]
  - Defaecation disorder [Not Recovered/Not Resolved]
  - Myalgia [Not Recovered/Not Resolved]
  - Haemoglobin decreased [Recovering/Resolving]
  - Platelet count decreased [Recovering/Resolving]
  - Protein urine present [Recovering/Resolving]
  - Urinary tract infection [Recovering/Resolving]
  - Skin odour abnormal [Recovering/Resolving]

NARRATIVE: CASE EVENT DATE: 20250101
